FAERS Safety Report 9222851 (Version 1)
Quarter: 2013Q1

REPORT INFORMATION
  Report Type: Spontaneous
  Country: US (occurrence: None)
  Receive Date: 20120914
  Receipt Date: 20120914
  Transmission Date: 20140127
  Serious: Yes (Hospitalization)
  Sender: FDA-Public Use
  Company Number: JPI-P-020756

PATIENT
  Age: 40 Year
  Sex: Female
  Weight: 81.65 kg

DRUGS (16)
  1. XYREM (500 MILLIGRAM/MILLILITERS, SOLUTION) (SODIUM OXYBATE) [Suspect]
     Indication: NARCOLEPSY
     Route: 048
     Dates: start: 20120330, end: 20120426
  2. XYREM (500 MILLIGRAM/MILLILITERS, SOLUTION) (SODIUM OXYBATE) [Suspect]
     Indication: SOMNOLENCE
     Route: 048
     Dates: start: 20120330, end: 20120426
  3. COUGH SYRUP [Suspect]
     Indication: SOMNOLENCE
  4. NUVIGIL (ARMODAFINIL) [Concomitant]
  5. MAGNESIUM [Concomitant]
  6. COQ10 (UBIDECARENONE) [Concomitant]
  7. CELEXA (CITALOPRAM HYDROBROMIDE) [Concomitant]
  8. MAXALT (RIZATRIPTAN BENZOATE) [Concomitant]
  9. YAZ (DROSPIRENONE AND ETHINYL ESTRADIOL) [Concomitant]
  10. ALEVE (NAPROXEN) [Concomitant]
  11. EXCEDRIN (ACETAMINOPHEN, ASPIRIN, AND CAFFEINE) [Concomitant]
  12. DULERA (MOMETASONE FOROATE AND FORMOTEROL FUMARATE DIHYDRATE) [Concomitant]
  13. VENTOLIN (ALBUTEROL) [Concomitant]
  14. BIOTIN [Concomitant]
  15. BEE POLLEN [Concomitant]
  16. BIOASTIN (ASTAXANTHIN) [Concomitant]

REACTIONS (10)
  - Dyspnoea [None]
  - Asthma [None]
  - Bronchitis [None]
  - Productive cough [None]
  - Oropharyngeal pain [None]
  - Feeling drunk [None]
  - Somnolence [None]
  - Drug dose omission [None]
  - Sinusitis [None]
  - Migraine [None]
